FAERS Safety Report 5154233-X (Version None)
Quarter: 2006Q4

REPORT INFORMATION
  Report Type: 
  Country: None (occurrence: None)
  Receive Date: 20061114
  Receipt Date: 20061027
  Transmission Date: 20070319
  Serious: Yes (Death, Hospitalization)
  Sender: FDA-Public Use
  Company Number: 2006-05182

PATIENT
  Age: 92 Year
  Sex: Female
  Weight: 51 kg

DRUGS (6)
  1. KENTERA (WATSON LABORATORIES)(OXYBUTYNIN) TRANSDERMAL PATCH, 3.9MG [Suspect]
     Indication: URGE INCONTINENCE
     Dosage: TRANSDERMAL
     Route: 062
     Dates: start: 20060430, end: 20060620
  2. ENALAPRIL MALEATE [Concomitant]
  3. TORSEMIDE [Concomitant]
  4. METOHEXAL [Concomitant]
  5. GLUCOBAY [Concomitant]
  6. ASPIRIN [Concomitant]

REACTIONS (2)
  - GASTRIC CANCER [None]
  - MALIGNANT NEOPLASM PROGRESSION [None]
